FAERS Safety Report 19029847 (Version 1)
Quarter: 2021Q1

REPORT INFORMATION
  Report Type: Spontaneous
  Country: US (occurrence: US)
  Receive Date: 20210319
  Receipt Date: 20210319
  Transmission Date: 20210420
  Serious: No
  Sender: FDA-Public Use
  Company Number: US-TEVA-2021-US-1882946

PATIENT
  Age: 71 Year
  Sex: Female

DRUGS (12)
  1. TRAMADOL HCL 50 MG TABLET [Concomitant]
  2. VITAMIN B12 2500 MCG TABLET [Concomitant]
  3. BENZTROPINE MESYLATE 2 MG TABLET [Concomitant]
  4. SPIRONOLACTONE?HCTZ [Concomitant]
     Active Substance: HYDROCHLOROTHIAZIDE\SPIRONOLACTONE
  5. GABAPENTIN 100 MG CAPSULE [Concomitant]
     Active Substance: GABAPENTIN
  6. AUSTEDO [Suspect]
     Active Substance: DEUTETRABENAZINE
     Indication: DYSKINESIA
     Route: 065
     Dates: start: 202101
  7. AUSTEDO [Suspect]
     Active Substance: DEUTETRABENAZINE
     Dosage: 24 MILLIGRAM DAILY;
     Route: 065
  8. VITAMIN D?400 10 MCG TABLET [Concomitant]
  9. FUROSEMIDE 40 MG TABLET [Concomitant]
  10. ROPINIROLE ER 12 MG [Concomitant]
     Dosage: TAB ER 24H
  11. LORAZEPAM 0.5 MG TABLET [Concomitant]
     Active Substance: LORAZEPAM
  12. LISINOPRIL 10 MG TABLET [Concomitant]
     Active Substance: LISINOPRIL

REACTIONS (1)
  - Weight increased [Not Recovered/Not Resolved]

NARRATIVE: CASE EVENT DATE: 202101
